FAERS Safety Report 11990899 (Version 1)
Quarter: 2016Q1

REPORT INFORMATION
  Report Type: Spontaneous
  Country: US (occurrence: US)
  Receive Date: 20160202
  Receipt Date: 20160202
  Transmission Date: 20160526
  Serious: No
  Sender: FDA-Public Use
  Company Number: PHHY2010US098639

PATIENT
  Sex: Female

DRUGS (2)
  1. ZOFRAN [Suspect]
     Active Substance: ONDANSETRON HYDROCHLORIDE
     Indication: HYPEREMESIS GRAVIDARUM
     Dosage: 8 MG,
     Route: 065
  2. ZOFRAN [Suspect]
     Active Substance: ONDANSETRON HYDROCHLORIDE
     Indication: HYPEREMESIS GRAVIDARUM

REACTIONS (4)
  - Dehydration [Unknown]
  - Live birth [Unknown]
  - Drug effect incomplete [Unknown]
  - Exposure during pregnancy [Unknown]
